FAERS Safety Report 10214957 (Version 1)
Quarter: 2014Q1

REPORT INFORMATION
  Report Type: Spontaneous
  Country: US (occurrence: None)
  Receive Date: 20140306
  Receipt Date: 20140306
  Transmission Date: 20141002
  Serious: Yes (Other)
  Sender: FDA-Public Use
  Company Number: 163-21880-13012336

PATIENT
  Sex: Male
  Weight: 93.4 kg

DRUGS (9)
  1. REVLIMID [Suspect]
     Indication: PLASMA CELL MYELOMA
     Dosage: 25 MG, 14 IN 21 D, PO
     Route: 048
     Dates: start: 20120726
  2. DEXAMETHASONE (DEXAMETHASONE) (TABLETS) [Concomitant]
  3. METHADONE HCL (METHADONE HYDROCHLORIDE) (TABLETS) [Concomitant]
  4. LYRICA (PREGABALIN) (CAPSULES) [Concomitant]
  5. AMOX TR-K CLV (TABLETS) [Concomitant]
  6. ACYCLOVIR (ACICLOVIR) (TABLETS) [Concomitant]
  7. BUPROPION HCL (BUPROPION HYDROCHLORIDE) (TABLETS) [Concomitant]
  8. SERTRALINE HCL (SERTRALINE HYDROCHLORIDE) (TABLETS) [Concomitant]
  9. VYVANSE (LISDEXAMFETAMINE MESILATE) (CAPSULES) [Concomitant]

REACTIONS (2)
  - Haemoglobin decreased [None]
  - Influenza [None]
